FAERS Safety Report 24774775 (Version 1)
Quarter: 2024Q4

REPORT INFORMATION
  Report Type: Report from Study
  Country: US (occurrence: US)
  Receive Date: 20241226
  Receipt Date: 20241226
  Transmission Date: 20250115
  Serious: Yes (Other)
  Sender: ALEXION PHARMACEUTICALS
  Company Number: US-AstraZeneca-CH-00771708A

PATIENT

DRUGS (2)
  1. ACALABRUTINIB [Suspect]
     Active Substance: ACALABRUTINIB
     Indication: Chronic lymphocytic leukaemia
     Dosage: 100 MILLIGRAM, BID
  2. CORTISONE [Concomitant]
     Active Substance: CORTISONE
     Route: 065

REACTIONS (10)
  - Crohn^s disease [Unknown]
  - Colitis [Unknown]
  - Hypertension [Unknown]
  - Abnormal faeces [Unknown]
  - Fatigue [Unknown]
  - Rotator cuff syndrome [Unknown]
  - Anaemia [Unknown]
  - Sepsis [Unknown]
  - Urinary tract infection [Unknown]
  - Post procedural complication [Unknown]
